FAERS Safety Report 10560588 (Version 1)
Quarter: 2014Q4

REPORT INFORMATION
  Report Type: Spontaneous
  Country: SG (occurrence: SG)
  Receive Date: 20141103
  Receipt Date: 20141103
  Transmission Date: 20150529
  Serious: Yes (Death)
  Sender: FDA-Public Use
  Company Number: SG-ACTELION-A-CH2014-107505

PATIENT
  Age: 12 Year
  Sex: Male

DRUGS (1)
  1. TRACLEER [Suspect]
     Active Substance: BOSENTAN\BOSENTAN MONOHYDRATE
     Indication: PORTOPULMONARY HYPERTENSION
     Route: 048

REACTIONS (2)
  - Disease progression [Fatal]
  - Portopulmonary hypertension [Fatal]
